FAERS Safety Report 21721523 (Version 1)
Quarter: 2022Q4

REPORT INFORMATION
  Report Type: Spontaneous
  Country: US (occurrence: None)
  Receive Date: 20221212
  Receipt Date: 20221212
  Transmission Date: 20230112
  Serious: Yes (Hospitalization)
  Sender: FDA-Public Use
  Company Number: None

PATIENT
  Age: 65 Year
  Sex: Female
  Weight: 70.8 kg

DRUGS (8)
  1. ZEPATIER [Suspect]
     Active Substance: ELBASVIR\GRAZOPREVIR
     Indication: Hepatitis C
     Dosage: 1 TABLET ONCE DAILY BY MOUTH
     Route: 048
     Dates: start: 20190427, end: 20190720
  2. ACETAMINOPHEN [Concomitant]
     Active Substance: ACETAMINOPHEN
  3. ASCORBIC ACID [Concomitant]
     Active Substance: ASCORBIC ACID
  4. ASPIRIN [Concomitant]
     Active Substance: ASPIRIN
  5. CALCIUM CITRATE\CHOLECALCIFEROL [Concomitant]
     Active Substance: CALCIUM CITRATE\CHOLECALCIFEROL
  6. FERROUS SULFATE [Concomitant]
     Active Substance: FERROUS SULFATE
  7. FLUDROCORTISONE [Concomitant]
     Active Substance: FLUDROCORTISONE
  8. FOLIC ACID [Concomitant]
     Active Substance: FOLIC ACID

REACTIONS (5)
  - Osteomyelitis [None]
  - Lung transplant [None]
  - Bronchial anastomosis complication [None]
  - Wound abscess [None]
  - Sternal fracture [None]

NARRATIVE: CASE EVENT DATE: 20190507
